FAERS Safety Report 25347794 (Version 2)
Quarter: 2025Q2

REPORT INFORMATION
  Report Type: Spontaneous
  Country: JP (occurrence: JP)
  Receive Date: 20250522
  Receipt Date: 20250602
  Transmission Date: 20250717
  Serious: Yes (Death)
  Sender: DAIICHI
  Company Number: JP-DSJP-DSJ-2023-139225

PATIENT
  Age: 82 Year
  Sex: Male

DRUGS (5)
  1. ENHERTU [Suspect]
     Active Substance: FAM-TRASTUZUMAB DERUXTECAN-NXKI
     Indication: HER2 positive gastric cancer
     Dosage: 5.4 MG/KG, ONCE EVERY 3 WK
     Route: 041
     Dates: start: 20230831
  2. ENHERTU [Suspect]
     Active Substance: FAM-TRASTUZUMAB DERUXTECAN-NXKI
     Dosage: 4.4 MG/KG, ONCE EVERY 3 WK
     Route: 041
     Dates: start: 20240822
  3. ENHERTU [Suspect]
     Active Substance: FAM-TRASTUZUMAB DERUXTECAN-NXKI
     Dosage: 4.4 MG/KG, ONCE EVERY 3 WK
     Route: 041
     Dates: end: 20241003
  4. PEGFILGRASTIM [Concomitant]
     Active Substance: PEGFILGRASTIM
     Indication: HER2 positive gastric cancer
     Route: 065
  5. PEGFILGRASTIM [Concomitant]
     Active Substance: PEGFILGRASTIM
     Route: 065

REACTIONS (5)
  - Disease progression [Fatal]
  - Diarrhoea [Unknown]
  - Decreased appetite [Recovering/Resolving]
  - Drug ineffective [Unknown]
  - Underdose [Unknown]

NARRATIVE: CASE EVENT DATE: 20230831
